FAERS Safety Report 8170850-7 (Version None)
Quarter: 2012Q1

REPORT INFORMATION
  Report Type: 
  Country: None (occurrence: None)
  Receive Date: 20120228
  Receipt Date: 20120222
  Transmission Date: 20120608
  Serious: Yes (Hospitalization, Other)
  Sender: FDA-Public Use
  Company Number: US-ABBOTT-11P-163-0861571-00

PATIENT
  Sex: Female
  Weight: 99.88 kg

DRUGS (7)
  1. LIPITOR [Concomitant]
     Indication: BLOOD CHOLESTEROL INCREASED
  2. PREDNISONE TAB [Concomitant]
     Indication: CROHN'S DISEASE
  3. LIALDA [Concomitant]
     Indication: CROHN'S DISEASE
  4. CELEXA [Concomitant]
     Indication: DEHYDRATION
  5. BENECAR [Concomitant]
     Indication: HYPERTENSION
  6. HUMIRA [Suspect]
     Indication: CROHN'S DISEASE
     Route: 058
     Dates: start: 20090101, end: 20110501
  7. HUMIRA [Suspect]
     Route: 058
     Dates: start: 20111006

REACTIONS (4)
  - CROHN'S DISEASE [None]
  - SKIN CANCER [None]
  - RECTAL HAEMORRHAGE [None]
  - INJECTION SITE PAIN [None]
